FAERS Safety Report 5637841-9 (Version None)
Quarter: 2008Q1

REPORT INFORMATION
  Report Type: 
  Country: None (occurrence: None)
  Receive Date: 20080220
  Receipt Date: 20080204
  Transmission Date: 20080703
  Serious: No
  Sender: FDA-Public Use
  Company Number: 8029599

PATIENT
  Age: 14 Year
  Sex: Male

DRUGS (2)
  1. KEPPRA [Suspect]
     Indication: CONVULSION
     Dosage: 500 MG 1/D IM
     Route: 030
     Dates: start: 20080202, end: 20080202
  2. BENZODIAZEPINE [Suspect]

REACTIONS (1)
  - DRUG SCREEN POSITIVE [None]
